FAERS Safety Report 5463921-7 (Version None)
Quarter: 2007Q3

REPORT INFORMATION
  Report Type: 
  Country: None (occurrence: None)
  Receive Date: 20070921
  Receipt Date: 20070604
  Transmission Date: 20080115
  Serious: No
  Sender: FDA-Public Use
  Company Number: A0654077A

PATIENT
  Age: 55 Year
  Sex: Male

DRUGS (6)
  1. AVANDARYL [Suspect]
     Dosage: 1TAB PER DAY
     Route: 048
     Dates: start: 20070220, end: 20070501
  2. ALTACE [Concomitant]
  3. TRICOR [Concomitant]
  4. TOPROL-XL [Concomitant]
  5. CADUET [Concomitant]
  6. DIOVAN [Concomitant]

REACTIONS (2)
  - BLOOD GLUCOSE INCREASED [None]
  - BLOOD TRIGLYCERIDES INCREASED [None]
